FAERS Safety Report 16132073 (Version 2)
Quarter: 2020Q3

REPORT INFORMATION
  Report Type: Other
  Country: CA (occurrence: CA)
  Receive Date: 20190329
  Receipt Date: 20200831
  Transmission Date: 20201102
  Serious: No
  Sender: FDA-Public Use
  Company Number: CA-ROCHE-2290171

PATIENT
  Age: 47 Year
  Sex: Female

DRUGS (14)
  1. ZOPICLONE [Concomitant]
     Active Substance: ZOPICLONE
     Dosage: AT BEDTIME
  2. IRBESARTAN. [Concomitant]
     Active Substance: IRBESARTAN
  3. CETIRIZINE [Concomitant]
     Active Substance: CETIRIZINE HYDROCHLORIDE
  4. DEXILANT [Concomitant]
     Active Substance: DEXLANSOPRAZOLE
  5. AMITRIPTYLINE [Concomitant]
     Active Substance: AMITRIPTYLINE
  6. OXIS [Concomitant]
     Active Substance: FORMOTEROL FUMARATE
     Dosage: 12 MICRO?GRAMS 1 PUFF TWICE DAILY
  7. ESCITALOPRAM [Concomitant]
     Active Substance: ESCITALOPRAM OXALATE
  8. OCREVUS [Suspect]
     Active Substance: OCRELIZUMAB
     Indication: RELAPSING-REMITTING MULTIPLE SCLEROSIS
     Dosage: 300 MG AT DAY 0 AND 14, THEN 600 MG EVERY 6 MONTH
     Route: 042
     Dates: start: 20180927
  9. ORPHENADRINE [Concomitant]
     Active Substance: ORPHENADRINE
  10. RIZATRIPTAN. [Concomitant]
     Active Substance: RIZATRIPTAN
  11. MONTELUKAST [Concomitant]
     Active Substance: MONTELUKAST SODIUM
  12. MODAFINIL. [Concomitant]
     Active Substance: MODAFINIL
  13. FLUCONAZOLE. [Concomitant]
     Active Substance: FLUCONAZOLE
  14. ALVESCO [Concomitant]
     Active Substance: CICLESONIDE
     Dosage: 200 MICRO?GRAMS 2 PUFFS TWICE DAILY

REACTIONS (1)
  - Nasopharyngitis [Not Recovered/Not Resolved]

NARRATIVE: CASE EVENT DATE: 201903
